FAERS Safety Report 4824702-8 (Version None)
Quarter: 2005Q4

REPORT INFORMATION
  Report Type: 
  Country: None (occurrence: None)
  Receive Date: 20051110
  Receipt Date: 20031217
  Transmission Date: 20060501
  Serious: Yes (Death, Hospitalization)
  Sender: FDA-Public Use
  Company Number: 2003SE05733

PATIENT
  Age: 67 Year
  Sex: Female

DRUGS (4)
  1. ZESTRIL [Suspect]
     Route: 048
     Dates: end: 20030101
  2. ZESTRIL [Suspect]
     Route: 048
     Dates: start: 20030101
  3. ORABET-METFORMIN [Suspect]
     Indication: DIABETES MELLITUS NON-INSULIN-DEPENDENT
     Route: 048
     Dates: start: 19930101, end: 20030505
  4. GLIBENCLAMIDE [Concomitant]
     Indication: DIABETES MELLITUS NON-INSULIN-DEPENDENT

REACTIONS (10)
  - CARDIAC ARREST [None]
  - CEREBRAL HAEMORRHAGE [None]
  - CONFUSIONAL STATE [None]
  - DISSEMINATED INTRAVASCULAR COAGULATION [None]
  - HAEMODIALYSIS [None]
  - LACTIC ACIDOSIS [None]
  - LOSS OF CONSCIOUSNESS [None]
  - PALLOR [None]
  - RENAL FAILURE ACUTE [None]
  - SEPSIS [None]
